FAERS Safety Report 23190806 (Version 1)
Quarter: 2023Q4

REPORT INFORMATION
  Report Type: Spontaneous
  Country: FR (occurrence: FR)
  Receive Date: 20231116
  Receipt Date: 20231116
  Transmission Date: 20240110
  Serious: Yes (Life-Threatening)
  Sender: FDA-Public Use
  Company Number: None

PATIENT
  Age: 83 Year
  Sex: Female
  Weight: 55.3 kg

DRUGS (11)
  1. CARBOPLATIN [Suspect]
     Active Substance: CARBOPLATIN
     Indication: Adrenal gland cancer
     Dates: start: 20220919, end: 20220919
  2. ETOPOSIDE [Suspect]
     Active Substance: ETOPOSIDE
     Indication: Adrenal gland cancer
     Dates: start: 20220919, end: 20220919
  3. HYDROCORTISONE [Concomitant]
     Active Substance: HYDROCORTISONE
     Indication: Product used for unknown indication
     Dates: end: 20220929
  4. INNOHEP [Concomitant]
     Active Substance: TINZAPARIN SODIUM
     Dosage: 10,000 IU ANTI-XA/0.5 ML, SOLUTION FOR INJECTION (S.C.) IN PRE-FILLED SYRINGE
     Dates: end: 20220929
  5. BISOPROLOL [Concomitant]
     Active Substance: BISOPROLOL\BISOPROLOL FUMARATE
     Dosage: 10 MG, SCORED FILM-COATED TABLET
     Dates: end: 20220929
  6. LEVOTHYROXINE [Concomitant]
     Active Substance: LEVOTHYROXINE
     Dates: end: 20220929
  7. SPIRONOLACTONE [Concomitant]
     Active Substance: SPIRONOLACTONE
     Dates: end: 20220929
  8. FUROSEMIDE [Concomitant]
     Active Substance: FUROSEMIDE
  9. OSILODROSTAT [Concomitant]
     Active Substance: OSILODROSTAT
     Dates: end: 20220929
  10. ACETAMINOPHEN [Concomitant]
     Active Substance: ACETAMINOPHEN
     Dates: end: 20220929
  11. ASCORBIC ACID [Concomitant]
     Active Substance: ASCORBIC ACID
     Dates: end: 20220929

REACTIONS (2)
  - Aplasia [Recovered/Resolved]
  - Septic shock [Recovered/Resolved]

NARRATIVE: CASE EVENT DATE: 20220929
